FAERS Safety Report 25430193 (Version 1)
Quarter: 2025Q2

REPORT INFORMATION
  Report Type: Spontaneous
  Country: NL (occurrence: NL)
  Receive Date: 20250612
  Receipt Date: 20250612
  Transmission Date: 20250717
  Serious: Yes (Other)
  Sender: TEVA
  Company Number: None

PATIENT
  Age: 82 Year
  Sex: Male
  Weight: 88 kg

DRUGS (4)
  1. ATORVASTATIN [Suspect]
     Active Substance: ATORVASTATIN
     Indication: Blood cholesterol
     Dosage: 1 PER DAY FOR 5 YEARS NOW, BRAND NAME NOT SPECIFIED
     Route: 048
     Dates: start: 20190421
  2. IRBESARTAN [Suspect]
     Active Substance: IRBESARTAN
     Indication: Product used for unknown indication
     Dosage: 1 PER DAY FOR 5 YEARS NOW, IRBESARTAN TEVA TABLET FILM COVER 150MG
     Route: 048
     Dates: start: 20190421
  3. METOPROLOL SUCCINATE [Suspect]
     Active Substance: METOPROLOL SUCCINATE
     Indication: Product used for unknown indication
     Dosage: 1 PER DAY FOR 5 YEARS NOW, METOPROLOL TABLET MGA 100MG (SUCCINATE) / 100 TABL MVA 95MG
     Route: 048
     Dates: start: 20190421
  4. CLOPIDOGREL BISULFATE [Suspect]
     Active Substance: CLOPIDOGREL BISULFATE
     Indication: Anticoagulant therapy
     Route: 048
     Dates: start: 20190421

REACTIONS (5)
  - Deafness [Recovering/Resolving]
  - Balance disorder [Recovering/Resolving]
  - Rhinorrhoea [Recovering/Resolving]
  - Tinnitus [Recovering/Resolving]
  - Product substitution issue [Unknown]

NARRATIVE: CASE EVENT DATE: 20241201
